FAERS Safety Report 20804374 (Version 3)
Quarter: 2022Q2

REPORT INFORMATION
  Report Type: Report from Study
  Country: US (occurrence: US)
  Receive Date: 20220509
  Receipt Date: 20220606
  Transmission Date: 20220721
  Serious: Yes (Death, Hospitalization, Other)
  Sender: FDA-Public Use
  Company Number: US-MMM-920O4BUX

PATIENT

DRUGS (1)
  1. BELANTAMAB MAFODOTIN [Suspect]
     Active Substance: BELANTAMAB MAFODOTIN
     Indication: Product used for unknown indication
     Dosage: 225 MG
     Route: 042
     Dates: start: 20220331

REACTIONS (10)
  - Death [Fatal]
  - Pancytopenia [Unknown]
  - Hypercalcaemia [Unknown]
  - Syncope [Unknown]
  - Fatigue [Unknown]
  - Retinal haemorrhage [Unknown]
  - Plasma cell myeloma [Unknown]
  - Eye disorder [Unknown]
  - Visual acuity reduced [Unknown]
  - Night blindness [Unknown]

NARRATIVE: CASE EVENT DATE: 20220401
